FAERS Safety Report 23627461 (Version 1)
Quarter: 2024Q1

REPORT INFORMATION
  Report Type: Spontaneous
  Country: US (occurrence: None)
  Receive Date: 20240313
  Receipt Date: 20240313
  Transmission Date: 20240410
  Serious: Yes (Hospitalization)
  Sender: FDA-Public Use
  Company Number: None

PATIENT
  Sex: Female
  Weight: 66 kg

DRUGS (2)
  1. GEMCITABINE HYDROCHLORIDE [Suspect]
     Active Substance: GEMCITABINE HYDROCHLORIDE
     Dates: end: 20230906
  2. PACLITAXEL [Suspect]
     Active Substance: PACLITAXEL
     Dates: end: 20230906

REACTIONS (4)
  - Pulmonary embolism [None]
  - Pancreatic carcinoma metastatic [None]
  - Disease progression [None]
  - Pleural effusion [None]

NARRATIVE: CASE EVENT DATE: 20231004
